FAERS Safety Report 8352222-5 (Version None)
Quarter: 2012Q2

REPORT INFORMATION
  Report Type: 
  Country: None (occurrence: None)
  Receive Date: 20120511
  Receipt Date: 20120506
  Transmission Date: 20120825
  Serious: Yes (Other)
  Sender: FDA-Public Use
  Company Number: US-TEVA-336869USA

PATIENT
  Sex: Female

DRUGS (1)
  1. COPAXONE [Suspect]
     Indication: MULTIPLE SCLEROSIS
     Route: 058
     Dates: start: 20120227

REACTIONS (6)
  - HYPOTENSION [None]
  - APHASIA [None]
  - PALLOR [None]
  - CYANOSIS [None]
  - OVERDOSE [None]
  - VISUAL IMPAIRMENT [None]
